FAERS Safety Report 11669427 (Version 1)
Quarter: 2015Q4

REPORT INFORMATION
  Report Type: Spontaneous
  Country: US (occurrence: US)
  Receive Date: 20151027
  Receipt Date: 20151027
  Transmission Date: 20160304
  Serious: No
  Sender: FDA-Public Use
  Company Number: US-ELI_LILLY_AND_COMPANY-US201004003634

PATIENT
  Sex: Female

DRUGS (2)
  1. FORTEO [Suspect]
     Active Substance: TERIPARATIDE
     Dosage: 20 UG, DAILY (1/D)
     Dates: start: 2010, end: 20100404
  2. FORTEO [Suspect]
     Active Substance: TERIPARATIDE
     Indication: OSTEOPOROSIS
     Dosage: 20 UG, DAILY (1/D)
     Dates: start: 20100218, end: 2010

REACTIONS (13)
  - Asthenia [Recovering/Resolving]
  - Dysgeusia [Recovering/Resolving]
  - Abdominal pain upper [Recovering/Resolving]
  - Disturbance in attention [Recovering/Resolving]
  - Adverse event [Recovering/Resolving]
  - Muscle injury [Recovering/Resolving]
  - Gastroenteritis viral [Recovering/Resolving]
  - Abdominal discomfort [Recovering/Resolving]
  - Malaise [Recovering/Resolving]
  - Apathy [Recovering/Resolving]
  - Feeling abnormal [Recovering/Resolving]
  - Arthropod bite [Recovered/Resolved]
  - Diarrhoea [Recovering/Resolving]

NARRATIVE: CASE EVENT DATE: 2010
